FAERS Safety Report 19184691 (Version 1)
Quarter: 2021Q2

REPORT INFORMATION
  Report Type: Spontaneous
  Country: US (occurrence: US)
  Receive Date: 20210426
  Receipt Date: 20210426
  Transmission Date: 20210717
  Serious: Yes (Life-Threatening, Hospitalization)
  Sender: FDA-Public Use
  Company Number: None

PATIENT
  Age: 48 Year
  Sex: Male
  Weight: 106.14 kg

DRUGS (2)
  1. BAMLANIVIMAB 700MG/20ML [Suspect]
     Active Substance: BAMLANIVIMAB
     Indication: COVID-19
     Route: 042
     Dates: start: 20210421, end: 20210421
  2. ETESEVIMAB 700MG/20ML [Suspect]
     Active Substance: ETESEVIMAB
     Indication: COVID-19
     Route: 042
     Dates: start: 20210421, end: 20210421

REACTIONS (6)
  - Hyperthermia [None]
  - Oxygen saturation decreased [None]
  - Tremor [None]
  - Hyperhidrosis [None]
  - Hallucination [None]
  - Pallor [None]

NARRATIVE: CASE EVENT DATE: 20210421
